FAERS Safety Report 24290898 (Version 1)
Quarter: 2024Q3

REPORT INFORMATION
  Report Type: Report from Study
  Country: US (occurrence: None)
  Receive Date: 20240906
  Receipt Date: 20240906
  Transmission Date: 20241016
  Serious: Yes (Other)
  Sender: ASTRAZENECA
  Company Number: 2024A197618

PATIENT
  Age: 71 Year
  Sex: Male

DRUGS (1)
  1. TAGRISSO [Suspect]
     Active Substance: OSIMERTINIB
     Route: 048

REACTIONS (3)
  - Cataract [Recovering/Resolving]
  - Irritability [Unknown]
  - Eye swelling [Unknown]

NARRATIVE: CASE EVENT DATE: 20240823
